FAERS Safety Report 16273982 (Version 1)
Quarter: 2019Q2

REPORT INFORMATION
  Report Type: Spontaneous
  Country: US (occurrence: US)
  Receive Date: 20190503
  Receipt Date: 20190503
  Transmission Date: 20190711
  Serious: No
  Sender: FDA-Public Use
  Company Number: US-RADIUS HEALTH INC.-2019US000462

PATIENT
  Age: 83 Year
  Sex: Female

DRUGS (1)
  1. TYMLOS [Suspect]
     Active Substance: ABALOPARATIDE
     Indication: OSTEOPOROSIS POSTMENOPAUSAL
     Dosage: 80 MCG, DAILY
     Route: 058
     Dates: start: 20190130

REACTIONS (7)
  - Fatigue [Unknown]
  - Diarrhoea [Unknown]
  - Product use complaint [None]
  - Vision blurred [Unknown]
  - Headache [Unknown]
  - Deafness [Unknown]
  - Cystitis [Unknown]

NARRATIVE: CASE EVENT DATE: 201801
